FAERS Safety Report 10345101 (Version 1)
Quarter: 2014Q3

REPORT INFORMATION
  Report Type: Spontaneous
  Country: US (occurrence: None)
  Receive Date: 20140724
  Receipt Date: 20140724
  Transmission Date: 20150326
  Serious: Yes (Hospitalization)
  Sender: FDA-Public Use
  Company Number: SYM-2014-23309

PATIENT
  Age: 64 Year
  Sex: Male
  Weight: 108.86 kg

DRUGS (11)
  1. HYDROYZINE (HYDROXYZINE) [Concomitant]
  2. CARAC [Suspect]
     Active Substance: FLUOROURACIL
     Indication: SKIN CANCER
     Route: 061
     Dates: start: 20140414
  3. CLONAZEPAM (CLONAZEPAM) [Concomitant]
  4. OMEPRAZOLE (OMEPRAZOLE) [Concomitant]
     Active Substance: OMEPRAZOLE
  5. LEVOTHYROXINE (LEVOTHYROXINE) [Concomitant]
     Active Substance: LEVOTHYROXINE
  6. VITAMIN C [Concomitant]
     Active Substance: ASCORBIC ACID
  7. METHOTREXATE SODIUM (METHOTREXATE SODIUM) [Concomitant]
     Active Substance: METHOTREXATE SODIUM
  8. SINEMET (LEVODOPA, CARBIDOPA) [Concomitant]
  9. MAGNESIUM (MAGNESIUM) [Concomitant]
     Active Substance: MAGNESIUM
  10. FLOMAX [Concomitant]
     Active Substance: TAMSULOSIN HYDROCHLORIDE
  11. FINASTERIDE (FINASTERIDE) [Concomitant]
     Active Substance: FINASTERIDE

REACTIONS (21)
  - Skin fissures [None]
  - Erythema [None]
  - Renal disorder [None]
  - Liver disorder [None]
  - Pain in extremity [None]
  - Nail hypertrophy [None]
  - Psoriasis [None]
  - Fluid retention [None]
  - Skin reaction [None]
  - Pain [None]
  - Pain of skin [None]
  - Drug ineffective [None]
  - Skin burning sensation [None]
  - Skin exfoliation [None]
  - Pruritus [None]
  - Peripheral swelling [None]
  - Chills [None]
  - Impaired healing [None]
  - Weight increased [None]
  - Skin disorder [None]
  - Skin haemorrhage [None]

NARRATIVE: CASE EVENT DATE: 2014
